FAERS Safety Report 8783421 (Version 3)
Quarter: 2013Q1

REPORT INFORMATION
  Report Type: Spontaneous
  Country: US (occurrence: US)
  Receive Date: 20120913
  Receipt Date: 20130102
  Transmission Date: 20140127
  Serious: No
  Sender: FDA-Public Use
  Company Number: US-PFIZER INC-2012222572

PATIENT
  Age: 56 Year
  Sex: Female

DRUGS (6)
  1. CAMPTOSAR [Suspect]
     Indication: COLON CANCER
     Dosage: 250 MG, UNK
  2. CAMPTOSAR [Suspect]
     Dosage: 150 MG/M2, CYCLIC, EVERY 2 WKS
     Route: 042
     Dates: start: 20120417, end: 20120807
  3. 5-FU [Concomitant]
     Indication: COLON CANCER
     Dosage: 300 MG/M2, UNK
     Route: 040
     Dates: start: 20120417, end: 20120807
  4. 5-FU [Concomitant]
     Dosage: 2000 MG/M2 OVER 46 HOURS
  5. OXYCONTIN [Concomitant]
     Dosage: UNK
  6. PAXIL [Concomitant]
     Dosage: UNK

REACTIONS (3)
  - Disease progression [Unknown]
  - Colon cancer [Unknown]
  - Mucosal inflammation [Recovered/Resolved]
